FAERS Safety Report 7228415-7 (Version None)
Quarter: 2011Q1

REPORT INFORMATION
  Report Type: 
  Country: None (occurrence: None)
  Receive Date: 20110114
  Receipt Date: 20110113
  Transmission Date: 20110831
  Serious: Yes (Hospitalization, Other)
  Sender: FDA-Public Use
  Company Number: BR-ABBOTT-10P-020-0656189-00

PATIENT
  Sex: Female
  Weight: 77 kg

DRUGS (6)
  1. FOLIC ACID [Concomitant]
     Indication: ANAEMIA
     Route: 048
  2. HYDROXYVITAMIN D25 [Concomitant]
     Indication: VITAMIN D
     Route: 048
     Dates: start: 20100701
  3. HUMIRA [Suspect]
     Indication: RHEUMATOID ARTHRITIS
     Route: 058
     Dates: start: 20080401, end: 20100902
  4. CALCIUM W/VITAMIN D [Concomitant]
     Indication: BONE DISORDER
     Route: 048
  5. METHOTREXATE [Concomitant]
     Indication: RHEUMATOID ARTHRITIS
     Route: 048
  6. HUMIRA [Suspect]
     Dosage: NO INDUCTION DOSE
     Dates: start: 20101018

REACTIONS (10)
  - PAIN IN EXTREMITY [None]
  - FEELING HOT [None]
  - FATIGUE [None]
  - OSTEOARTHRITIS [None]
  - GAIT DISTURBANCE [None]
  - OSTEOPENIA [None]
  - WOUND [None]
  - OSTEOSCLEROSIS [None]
  - ARTHRALGIA [None]
  - ARTHROPATHY [None]
